FAERS Safety Report 8366385-9 (Version None)
Quarter: 2012Q2

REPORT INFORMATION
  Report Type: 
  Country: None (occurrence: None)
  Receive Date: 20120517
  Receipt Date: 20120511
  Transmission Date: 20120825
  Serious: Yes (Hospitalization, Other)
  Sender: FDA-Public Use
  Company Number: FR-PFIZER INC-2012115339

PATIENT
  Age: 67 Year
  Sex: Female

DRUGS (10)
  1. TRANXENE [Concomitant]
     Dosage: UNK
     Dates: start: 20070501
  2. DOGMATIL [Concomitant]
     Dosage: UNK
     Dates: start: 20070501
  3. HYPERIUM [Concomitant]
     Dosage: UNK
     Dates: start: 20090201
  4. OLMESARTAN MEDOXOMIL [Concomitant]
     Dosage: UNK
     Dates: start: 20111001
  5. SUTENT [Suspect]
     Indication: RENAL CELL CARCINOMA
     Dosage: UNK
     Route: 048
     Dates: start: 20070601, end: 20111107
  6. LEVOTHYROXINE SODIUM [Concomitant]
     Dosage: UNK
     Dates: start: 20090201
  7. NEXIUM [Concomitant]
     Dosage: UNK
     Dates: start: 20101201
  8. CALCIUM WITH VITAMIN D [Concomitant]
     Dosage: UNK
     Dates: start: 20111001
  9. ALDALIX [Concomitant]
     Dosage: UNK
     Dates: start: 20070501
  10. FOLIC ACID [Concomitant]
     Dosage: UNK
     Dates: start: 20090201

REACTIONS (5)
  - CONDITION AGGRAVATED [None]
  - OSTEITIS [None]
  - VENOUS THROMBOSIS LIMB [None]
  - SKIN ULCER [None]
  - OSTEOARTHRITIS [None]
